FAERS Safety Report 5080400-X (Version None)
Quarter: 2006Q3

REPORT INFORMATION
  Report Type: 
  Country: None (occurrence: None)
  Receive Date: 20060814
  Receipt Date: 20060814
  Transmission Date: 20061208
  Serious: No
  Sender: FDA-Public Use
  Company Number: None

PATIENT
  Age: 12 Year
  Sex: Female
  Weight: 47 kg

DRUGS (4)
  1. ONCASPAR [Suspect]
     Indication: NON-HODGKIN'S LYMPHOMA
     Dosage: 2500 UNITS/M2 Q3-4 WEEKS IM
     Route: 030
     Dates: start: 20060614
  2. METHOTREXATE [Concomitant]
  3. CYTARABINE [Concomitant]
  4. HYDROCORTISONE [Concomitant]

REACTIONS (4)
  - ABDOMINAL PAIN [None]
  - DERMATITIS ALLERGIC [None]
  - DRUG HYPERSENSITIVITY [None]
  - TYPE IV HYPERSENSITIVITY REACTION [None]
